FAERS Safety Report 8487227-7 (Version None)
Quarter: 2012Q3

REPORT INFORMATION
  Report Type: 
  Country: None (occurrence: None)
  Receive Date: 20120705
  Receipt Date: 20120619
  Transmission Date: 20120928
  Serious: Yes (Other)
  Sender: FDA-Public Use
  Company Number: US-ROCHE-1080244

PATIENT
  Sex: Female

DRUGS (2)
  1. MABTHERA [Suspect]
     Dates: start: 20100426
  2. MABTHERA [Suspect]
     Indication: RHEUMATOID ARTHRITIS
     Route: 042
     Dates: start: 20100404

REACTIONS (2)
  - ARTHRALGIA [None]
  - CARDIAC PACEMAKER INSERTION [None]
